FAERS Safety Report 17043691 (Version 1)
Quarter: 2019Q4

REPORT INFORMATION
  Report Type: Spontaneous
  Country: AT (occurrence: AT)
  Receive Date: 20191118
  Receipt Date: 20191118
  Transmission Date: 20200122
  Serious: Yes (Hospitalization, Other)
  Sender: FDA-Public Use
  Company Number: AT-PFIZER INC-2019490962

PATIENT
  Sex: Male

DRUGS (3)
  1. ENTRESTO [Suspect]
     Active Substance: SACUBITRIL\VALSARTAN
     Dosage: 100 MG, 2X/DAY (49/51 MG)
  2. EPLERENONE. [Suspect]
     Active Substance: EPLERENONE
     Dosage: UNK
  3. ENTRESTO [Suspect]
     Active Substance: SACUBITRIL\VALSARTAN
     Dosage: 200 MG, 2X/DAY (97/103 MG)

REACTIONS (4)
  - Angioedema [Unknown]
  - Cough [Unknown]
  - Obstructive airways disorder [Unknown]
  - Dysphagia [Unknown]
